FAERS Safety Report 11558831 (Version 1)
Quarter: 2015Q3

REPORT INFORMATION
  Report Type: Spontaneous
  Country: US (occurrence: US)
  Receive Date: 20150928
  Receipt Date: 20150928
  Transmission Date: 20151125
  Serious: Yes (Hospitalization, Other)
  Sender: FDA-Public Use
  Company Number: US-JNJFOC-20150917164

PATIENT
  Sex: Male

DRUGS (1)
  1. BENADRYL [Suspect]
     Active Substance: DIPHENHYDRAMINE HYDROCHLORIDE
     Indication: MULTIPLE ALLERGIES
     Route: 065

REACTIONS (7)
  - Small intestinal obstruction [None]
  - Asthenia [None]
  - Malaise [None]
  - Asthenia [Recovered/Resolved]
  - Impaired gastric emptying [Recovered/Resolved]
  - Contraindicated drug administered [None]
  - Impaired work ability [None]
